FAERS Safety Report 21518351 (Version 1)
Quarter: 2022Q4

REPORT INFORMATION
  Report Type: Spontaneous
  Country: US (occurrence: US)
  Receive Date: 20221028
  Receipt Date: 20221028
  Transmission Date: 20230112
  Serious: No
  Sender: FDA-Public Use
  Company Number: US-HORIZON THERAPEUTICS-HZN-2022-003017

PATIENT

DRUGS (5)
  1. KRYSTEXXA [Suspect]
     Active Substance: PEGLOTICASE
     Indication: Product used for unknown indication
     Dosage: UNK  (INFUSION 1)
     Route: 042
  2. KRYSTEXXA [Suspect]
     Active Substance: PEGLOTICASE
     Dosage: 7TH INFUSION
     Route: 042
  3. KRYSTEXXA [Suspect]
     Active Substance: PEGLOTICASE
     Dosage: 12TH INFUSION
     Route: 042
  4. CELLCEPT [Suspect]
     Active Substance: MYCOPHENOLATE MOFETIL
     Indication: Product used for unknown indication
     Dosage: 1 DOSAGE FORM, BID FOR 1 WEEK
     Route: 065
  5. CELLCEPT [Suspect]
     Active Substance: MYCOPHENOLATE MOFETIL
     Dosage: 2 DOSAGE FORM, BID
     Route: 065

REACTIONS (3)
  - Haemoglobin decreased [Unknown]
  - Haematocrit decreased [Unknown]
  - Blood disorder [Unknown]
